FAERS Safety Report 17062900 (Version 2)
Quarter: 2019Q4

REPORT INFORMATION
  Report Type: Report from Study
  Country: NL (occurrence: NL)
  Receive Date: 20191122
  Receipt Date: 20191215
  Transmission Date: 20200122
  Serious: Yes (Hospitalization, Other)
  Sender: FDA-Public Use
  Company Number: NL-AMGEN-NLDSL2019131035

PATIENT
  Age: 70 Year
  Sex: Female

DRUGS (17)
  1. FLUTICASONE PROPIONATE. [Concomitant]
     Active Substance: FLUTICASONE PROPIONATE
     Dosage: UNK, (50 MICROGRAM/DO FL 150DO 1XD 2 SPRAY)
     Route: 045
  2. PANTOPRAZOL [Concomitant]
     Active Substance: PANTOPRAZOLE SODIUM
     Dosage: 40 MILLIGRAM, QD
  3. OXYCODON [Concomitant]
     Active Substance: OXYCODONE
     Dosage: 10 MILLIGRAM
  4. XGEVA [Suspect]
     Active Substance: DENOSUMAB
     Indication: PROPHYLAXIS
     Dosage: 120 MILLIGRAM PER MILLILITRE, Q4WK
     Route: 065
     Dates: start: 20190306
  5. MACROGOL [Concomitant]
     Active Substance: POLYETHYLENE GLYCOLS
     Dosage: 1 MILLIGRAM PER GRAM, QD
  6. TRIMETHOPRIM. [Concomitant]
     Active Substance: TRIMETHOPRIM
     Dosage: 100 MILLIGRAM, QD
  7. BENZALKONIUM [Concomitant]
     Active Substance: BENZALKONIUM
     Dosage: UNK, QD
  8. OXYCODON [Concomitant]
     Active Substance: OXYCODONE
     Dosage: 20 MILLIGRAM, QOD
  9. PALBOCICLIB [Concomitant]
     Active Substance: PALBOCICLIB
     Dosage: 75 MILLIGRAM, QD
  10. COTRIMOXAZOL [Concomitant]
     Active Substance: SULFAMETHOXAZOLE\TRIMETHOPRIM
     Dosage: 160/800 MILLIGRAM, QOD
  11. XGEVA [Suspect]
     Active Substance: DENOSUMAB
     Dosage: UNK
     Route: 065
  12. XGEVA [Suspect]
     Active Substance: DENOSUMAB
     Dosage: UNK
     Route: 065
  13. LATANOPROST. [Concomitant]
     Active Substance: LATANOPROST
     Dosage: 50 MICROGRAM PER MILLIGRAM FL 2.5ML
     Route: 047
  14. MACROGOL [Concomitant]
     Active Substance: POLYETHYLENE GLYCOLS
     Dosage: UNK, AS NECESSARY
  15. CALCIUM CARBONATE;COLECALCIFEROL [Concomitant]
     Active Substance: CALCIUM CARBONATE\CHOLECALCIFEROL
     Dosage: (1.25G/440IE ) (500 MG CA), QD
  16. LETROZOL [Concomitant]
     Active Substance: LETROZOLE
     Dosage: 2.5 MILLIGRAM, QD
  17. LIDOCAINE. [Concomitant]
     Active Substance: LIDOCAINE
     Dosage: 20 MILLIGRAM PER MILLILITRE, 3D

REACTIONS (4)
  - Pyrexia [Recovered/Resolved]
  - Device related infection [Recovered/Resolved]
  - Infection [Unknown]
  - Nephrostomy [Unknown]

NARRATIVE: CASE EVENT DATE: 2019
